FAERS Safety Report 8281750-6 (Version None)
Quarter: 2012Q2

REPORT INFORMATION
  Report Type: 
  Country: None (occurrence: None)
  Receive Date: 20120410
  Receipt Date: 20120330
  Transmission Date: 20120825
  Serious: Yes (Other)
  Sender: FDA-Public Use
  Company Number: 2010JP001659

PATIENT
  Age: 13 Year
  Sex: Female
  Weight: 39.4 kg

DRUGS (14)
  1. PERSANTIN [Concomitant]
  2. INCREMIN (FERRIS PYROPHOSPHATE) [Concomitant]
  3. NEORAL [Concomitant]
  4. LEUPLIN (LEUPRORELIN ACETATE) [Concomitant]
  5. PREDNISOLONE [Concomitant]
  6. ACTONEL [Concomitant]
  7. TACROLIMUS [Suspect]
     Indication: LUPUS NEPHRITIS
     Route: 048
     Dates: start: 20080729, end: 20080929
  8. TACROLIMUS [Suspect]
     Indication: LUPUS NEPHRITIS
     Route: 048
     Dates: start: 20080311, end: 20080728
  9. TACROLIMUS [Suspect]
     Indication: LUPUS NEPHRITIS
     Route: 048
     Dates: start: 20091016, end: 20110223
  10. TACROLIMUS [Suspect]
     Indication: LUPUS NEPHRITIS
     Route: 048
     Dates: start: 20071122, end: 20071227
  11. TACROLIMUS [Suspect]
     Indication: LUPUS NEPHRITIS
     Route: 048
     Dates: start: 20071228, end: 20080310
  12. TACROLIMUS [Suspect]
     Indication: LUPUS NEPHRITIS
     Route: 048
     Dates: start: 20081115, end: 20091015
  13. TACROLIMUS [Suspect]
     Indication: LUPUS NEPHRITIS
     Route: 048
     Dates: start: 20080930, end: 20081114
  14. PHENYTOIN [Concomitant]

REACTIONS (5)
  - LOSS OF CONSCIOUSNESS [None]
  - MENORRHAGIA [None]
  - IRON DEFICIENCY ANAEMIA [None]
  - COUGH [None]
  - RASH [None]
